FAERS Safety Report 12292371 (Version 2)
Quarter: 2016Q2

REPORT INFORMATION
  Report Type: Report from Study
  Country: US (occurrence: US)
  Receive Date: 20160421
  Receipt Date: 20160616
  Transmission Date: 20160815
  Serious: Yes (Other)
  Sender: FDA-Public Use
  Company Number: US-AMGEN-USASL2016012192

PATIENT
  Age: 71 Year
  Sex: Male

DRUGS (1)
  1. REPATHA [Suspect]
     Active Substance: EVOLOCUMAB
     Indication: HYPERCHOLESTEROLAEMIA
     Dosage: 140 MG, Q2WK
     Route: 065
     Dates: start: 20160129

REACTIONS (15)
  - Metastases to lymph nodes [Unknown]
  - Eructation [Unknown]
  - Productive cough [Not Recovered/Not Resolved]
  - Lung cancer metastatic [Unknown]
  - Metastases to spine [Unknown]
  - Metastases to bone [Unknown]
  - Fatigue [Unknown]
  - Chest discomfort [Unknown]
  - Chest pain [Unknown]
  - Respiratory tract congestion [Unknown]
  - Sputum discoloured [Unknown]
  - Sinusitis [Unknown]
  - Peripheral coldness [Unknown]
  - Asthenia [Unknown]
  - Back pain [Unknown]
